FAERS Safety Report 10007031 (Version 1)
Quarter: 2014Q1

REPORT INFORMATION
  Report Type: Spontaneous
  Country: US (occurrence: US)
  Receive Date: 20140313
  Receipt Date: 20140313
  Transmission Date: 20141002
  Serious: Yes (Death, Hospitalization)
  Sender: FDA-Public Use
  Company Number: US-GLAXOSMITHKLINE-A1064749A

PATIENT
  Age: 77 Year
  Sex: Male
  Weight: 86 kg

DRUGS (1)
  1. ARZERRA [Suspect]
     Indication: CHRONIC LYMPHOCYTIC LEUKAEMIA
     Dosage: 2000MG WEEKLY
     Route: 042
     Dates: start: 20111102, end: 20111117

REACTIONS (4)
  - Death [Fatal]
  - Chronic lymphocytic leukaemia [Unknown]
  - Ill-defined disorder [Unknown]
  - Hospice care [Unknown]
